FAERS Safety Report 13451235 (Version 1)
Quarter: 2017Q2

REPORT INFORMATION
  Report Type: Spontaneous
  Country: US (occurrence: US)
  Receive Date: 20170417
  Receipt Date: 20170417
  Transmission Date: 20170830
  Serious: Yes (Disabling)
  Sender: FDA-Public Use
  Company Number: None

PATIENT
  Age: 55 Year
  Sex: Female
  Weight: 63 kg

DRUGS (10)
  1. GADOLINIUM [Suspect]
     Active Substance: GADOLINIUM
     Indication: BREAST SCAN
     Route: 042
     Dates: start: 20161227, end: 20161227
  2. ISRIDRIPINE [Concomitant]
  3. PROBIOTICS [Concomitant]
     Active Substance: PROBIOTICS NOS
  4. GADOLINIUM [Suspect]
     Active Substance: GADOLINIUM
     Indication: SCAN WITH CONTRAST
     Route: 042
     Dates: start: 20161227, end: 20161227
  5. D [Concomitant]
  6. B [Concomitant]
  7. TUMERIC [Concomitant]
     Active Substance: HERBALS\TURMERIC
  8. GADOLINIUM [Suspect]
     Active Substance: GADOLINIUM
     Indication: NUCLEAR MAGNETIC RESONANCE IMAGING
     Route: 042
     Dates: start: 20161227, end: 20161227
  9. COQ10 [Concomitant]
     Active Substance: UBIDECARENONE
  10. OMEGA 3 [Concomitant]
     Active Substance: OMEGA-3 FATTY ACIDS

REACTIONS (5)
  - Parkinsonism [None]
  - Tremor [None]
  - Feeling jittery [None]
  - Toxicity to various agents [None]
  - Asthenia [None]

NARRATIVE: CASE EVENT DATE: 20161227
